FAERS Safety Report 7114382-3 (Version None)
Quarter: 2010Q4

REPORT INFORMATION
  Report Type: 
  Country: None (occurrence: None)
  Receive Date: 20101119
  Receipt Date: 20101108
  Transmission Date: 20110411
  Serious: Yes (Other)
  Sender: FDA-Public Use
  Company Number: US-PURDUE-USA-2010-0046455

PATIENT
  Sex: Male

DRUGS (3)
  1. OXYCONTIN [Suspect]
     Indication: OSTEOPOROSIS
     Dosage: 400 MG, TID
     Route: 048
     Dates: start: 20100801
  2. OXYCONTIN [Suspect]
     Indication: SURGERY
  3. OXYCONTIN [Suspect]
     Indication: DISABILITY

REACTIONS (7)
  - ABDOMINAL DISCOMFORT [None]
  - DRUG INEFFECTIVE [None]
  - INADEQUATE ANALGESIA [None]
  - NAUSEA [None]
  - PRODUCT COATING ISSUE [None]
  - PRODUCT FORMULATION ISSUE [None]
  - TOOTH FRACTURE [None]
